FAERS Safety Report 11154894 (Version 1)
Quarter: 2015Q2

REPORT INFORMATION
  Report Type: Spontaneous
  Country: ES (occurrence: None)
  Receive Date: 20150529
  Receipt Date: 20150529
  Transmission Date: 20150821
  Serious: Yes (Death, Life-Threatening, Hospitalization, Other)
  Sender: FDA-Public Use
  Company Number: KAD201505-001321

PATIENT
  Sex: Female
  Weight: 52 kg

DRUGS (6)
  1. VIEKIRAX [Suspect]
     Active Substance: OMBITASVIR\PARITAPREVIR\RITONAVIR
     Indication: HEPATITIS C
     Dosage: TABLET, TWO DOSAGE FORM, ONE IN ONE DAY, ORAL
     Route: 048
     Dates: start: 20150504, end: 20150512
  2. MOVICOL (MACROGOL) [Concomitant]
  3. EXVIERA [Suspect]
     Active Substance: DASABUVIR
     Indication: HEPATITIS C
     Dosage: TABLET, ONE DOSAGE FORM, ONE IN 12 HOUR, ORAL
     Route: 048
     Dates: start: 20150504, end: 20150512
  4. MASDIL RETARD [Suspect]
     Active Substance: DILTIAZEM HYDROCHLORIDE
     Indication: HEPATITIS C
     Dates: end: 20150512
  5. ALDACTONE [Concomitant]
     Active Substance: SPIRONOLACTONE
  6. RIBAVIRIN. [Suspect]
     Active Substance: RIBAVIRIN
     Indication: HEPATITIS C
     Route: 048
     Dates: start: 20150504, end: 20150512

REACTIONS (18)
  - Pseudomonal bacteraemia [None]
  - Acute prerenal failure [None]
  - Nausea [None]
  - Atrioventricular block [None]
  - Cardio-respiratory arrest [None]
  - Chest pain [None]
  - Blood potassium increased [None]
  - Aspiration [None]
  - Hyponatraemia [None]
  - Bundle branch block right [None]
  - Pneumonia aspiration [None]
  - Drug interaction [None]
  - Atrial fibrillation [None]
  - Constipation [None]
  - Malaise [None]
  - Post procedural complication [None]
  - Staphylococcal bacteraemia [None]
  - Anaemia [None]
